FAERS Safety Report 11836156 (Version 1)
Quarter: 2015Q4

REPORT INFORMATION
  Report Type: Other
  Country: US (occurrence: US)
  Receive Date: 20151215
  Receipt Date: 20151215
  Transmission Date: 20160305
  Serious: Yes (Other)
  Sender: FDA-Public Use
  Company Number: US-COL_21529_2015

PATIENT
  Sex: Female

DRUGS (1)
  1. LADY SPEED STICK INVISIBLE DRY WILD FREESIA [Suspect]
     Active Substance: ALUMINUM ZIRCONIUM TETRACHLOROHYDREX GLY
     Dosage: NI/NI/
     Route: 061

REACTIONS (1)
  - Nephropathy [Unknown]
